FAERS Safety Report 10977231 (Version 1)
Quarter: 2015Q1

REPORT INFORMATION
  Report Type: Spontaneous
  Country: US (occurrence: None)
  Receive Date: 20150331
  Receipt Date: 20150331
  Transmission Date: 20150721
  Serious: Yes (Other)
  Sender: FDA-Public Use
  Company Number: CO-OR-US-2015-009

PATIENT

DRUGS (2)
  1. IMURAN [Suspect]
     Active Substance: AZATHIOPRINE
     Indication: GRAFT VERSUS HOST DISEASE
  2. ORAPRED ODT [Suspect]
     Active Substance: PREDNISOLONE SODIUM PHOSPHATE
     Indication: GRAFT VERSUS HOST DISEASE

REACTIONS (1)
  - Hyperthyroidism [None]
